FAERS Safety Report 9152992 (Version 1)
Quarter: 2013Q1

REPORT INFORMATION
  Report Type: Spontaneous
  Country: US (occurrence: US)
  Receive Date: 20130310
  Receipt Date: 20130310
  Transmission Date: 20140127
  Serious: Yes (Other)
  Sender: FDA-Public Use
  Company Number: US-AMGEN-USASP2013014766

PATIENT
  Age: 63 Year
  Sex: Female
  Weight: 98.1 kg

DRUGS (8)
  1. ENBREL [Suspect]
     Indication: RHEUMATOID ARTHRITIS
     Dosage: UNK
  2. LEFLUNOMIDE [Concomitant]
     Dosage: 20 MG, QD
     Route: 048
  3. CELEBREX [Concomitant]
     Dosage: 200 MG, QD
     Route: 048
  4. ATENOLOL [Concomitant]
     Dosage: 1 DF, QD
     Route: 048
  5. ACIPHEX [Concomitant]
     Dosage: 1 DF, QD
     Route: 048
  6. HYDROCHLOORTHIAZIDE [Concomitant]
     Dosage: 12.5 MG, UNK
     Route: 048
  7. LYRICA [Concomitant]
     Dosage: 150 MG, BID
  8. CYANOCOBALAMIN [Concomitant]
     Dosage: 0.1 ML, QMO
     Route: 030

REACTIONS (23)
  - Hypergammaglobulinaemia [Unknown]
  - Sleep apnoea syndrome [Unknown]
  - Intervertebral disc degeneration [Unknown]
  - Pneumonia [Unknown]
  - Arthralgia [Unknown]
  - Musculoskeletal pain [Unknown]
  - Hepatic enzyme increased [Unknown]
  - Malaise [Unknown]
  - Sinus disorder [Unknown]
  - Post procedural complication [Unknown]
  - Fatigue [Unknown]
  - Sinus headache [Unknown]
  - Vitamin B12 deficiency [Unknown]
  - Osteoarthritis [Unknown]
  - Fibromyalgia [Unknown]
  - Myalgia [Unknown]
  - Oedema [Unknown]
  - Drug hypersensitivity [Unknown]
  - Myositis [Unknown]
  - Tooth disorder [Unknown]
  - Drug ineffective [Unknown]
  - Vitamin D deficiency [Unknown]
  - Upper respiratory tract infection [Unknown]
